FAERS Safety Report 24644461 (Version 1)
Quarter: 2024Q4

REPORT INFORMATION
  Report Type: Spontaneous
  Country: US (occurrence: US)
  Receive Date: 20241121
  Receipt Date: 20241121
  Transmission Date: 20250115
  Serious: Yes (Hospitalization, Other)
  Sender: ENDO
  Company Number: US-ENDO USA, INC.-2024-050687

PATIENT
  Sex: Male

DRUGS (2)
  1. PREDNISONE [Suspect]
     Active Substance: PREDNISONE
     Indication: Product used for unknown indication
     Dosage: UNK UNKNOWN, UNKNOWN
     Route: 065
  2. XELJANZ XR [Concomitant]
     Active Substance: TOFACITINIB CITRATE
     Indication: Product used for unknown indication
     Dosage: 11 MILLIGRAM, DAILY
     Route: 048
     Dates: start: 2018

REACTIONS (2)
  - Hip arthroplasty [Recovering/Resolving]
  - Arthropathy [Unknown]

NARRATIVE: CASE EVENT DATE: 20240801
